FAERS Safety Report 10217901 (Version 1)
Quarter: 2014Q2

REPORT INFORMATION
  Report Type: Spontaneous
  Country: US (occurrence: US)
  Receive Date: 20140605
  Receipt Date: 20140605
  Transmission Date: 20141212
  Serious: No
  Sender: FDA-Public Use
  Company Number: US-ASTRAZENECA-2014SE35960

PATIENT
  Age: 40 Year
  Sex: Female

DRUGS (1)
  1. SYMBICORT [Suspect]
     Indication: ASTHMA
     Dosage: 80 4.5 MCG, 2 PUFFS, DAILY
     Route: 055
     Dates: start: 20140426

REACTIONS (5)
  - Back pain [Unknown]
  - Paraesthesia [Unknown]
  - Nausea [Unknown]
  - Rash [Unknown]
  - Intentional product misuse [Unknown]
